FAERS Safety Report 9006075 (Version 1)
Quarter: 2013Q1

REPORT INFORMATION
  Report Type: Spontaneous
  Country: US (occurrence: US)
  Receive Date: 20130109
  Receipt Date: 20130109
  Transmission Date: 20140127
  Serious: Yes (Death)
  Sender: FDA-Public Use
  Company Number: CHPA2013US000497

PATIENT
  Age: 78 Year
  Sex: Male

DRUGS (1)
  1. BENEFIBER UNKNOWN [Suspect]
     Indication: SUPPLEMENTATION THERAPY
     Dosage: 2 TSP, ONCE DAILY
     Route: 048
     Dates: start: 2000, end: 20120518

REACTIONS (2)
  - Tongue cancer recurrent [Fatal]
  - Therapeutic response unexpected [Unknown]
